FAERS Safety Report 7812311-8 (Version None)
Quarter: 2011Q4

REPORT INFORMATION
  Report Type: 
  Country: None (occurrence: None)
  Receive Date: 20111013
  Receipt Date: 20111004
  Transmission Date: 20120403
  Serious: Yes (Death, Other)
  Sender: FDA-Public Use
  Company Number: US-BAYER-200940482NA

PATIENT
  Age: 49 Year
  Sex: Male
  Weight: 77.098 kg

DRUGS (24)
  1. LIDOCAINE [Concomitant]
     Dosage: UNK
     Dates: start: 20000108
  2. EPINEPHRINE [Concomitant]
     Dosage: 1 ML, UNK
     Dates: start: 20000108
  3. NITROGLYCERIN [Concomitant]
     Dosage: UNK
     Route: 042
     Dates: start: 20000108
  4. ARAMINE [Concomitant]
     Dosage: UNK
     Dates: start: 20000108
  5. NITROSTAT [Concomitant]
     Dosage: UNK
     Route: 042
     Dates: start: 20000108
  6. ATENOLOL [Concomitant]
     Dosage: 25 MG, UNK
     Route: 048
     Dates: start: 20000108
  7. TRASYLOL [Suspect]
     Dosage: 2 MILLION UNIT LOADING DOSE
     Route: 042
     Dates: start: 20000112, end: 20000112
  8. PROTAMINE [Concomitant]
     Dosage: 25 ML, UNK
     Route: 042
     Dates: start: 20000111, end: 20000113
  9. ACETYLSALICYLIC ACID SRT [Concomitant]
     Dosage: 325 MG, UNK
     Route: 048
     Dates: start: 20000108
  10. OPTIRAY 160 [Concomitant]
     Dosage: 30 ML, UNK
     Dates: start: 20000110
  11. HEPARIN [Concomitant]
     Dosage: UNK
     Dates: start: 20000108, end: 20000113
  12. OMNIPAQUE 140 [Concomitant]
     Dosage: 150 ML, UNK
  13. TRASYLOL [Suspect]
     Dosage: 1 ML, ONCE TEST DOSE
     Route: 042
     Dates: start: 20000112, end: 20000112
  14. EPINEPHRINE [Concomitant]
     Dosage: UNK
     Route: 042
     Dates: start: 20000112
  15. POTASSIUM CHLORIDE [Concomitant]
     Dosage: 60 MEQ, UNK
     Route: 042
     Dates: start: 20000109
  16. MANNITOL [Concomitant]
     Dosage: 12.5 G, UNK
     Dates: start: 20000111
  17. VERSED [Concomitant]
     Dosage: UNK
     Route: 042
     Dates: start: 20000112
  18. CARDIZEM [Concomitant]
     Dosage: UNK
     Route: 042
     Dates: start: 20000112
  19. TRASYLOL [Suspect]
     Indication: CORONARY ARTERY BYPASS
     Dosage: 4 200 ML INJECTIONS
     Route: 042
     Dates: start: 20000112
  20. ZINACEF [Concomitant]
     Dosage: 1.5 G, UNK
     Route: 042
     Dates: start: 20000111
  21. TRASYLOL [Suspect]
     Dosage: 50 ML/HR
     Route: 042
     Dates: start: 20000112, end: 20000112
  22. CALCIUM CHLORIDE [Concomitant]
     Dosage: 1 G, UNK
     Route: 042
     Dates: start: 20000111
  23. VANCOMYCIN [Concomitant]
     Dosage: UNK
     Route: 042
     Dates: start: 20000112
  24. PLATELETS [Concomitant]
     Dosage: 10 U, UNK
     Route: 042
     Dates: start: 20000112

REACTIONS (14)
  - FEAR [None]
  - INJURY [None]
  - PAIN [None]
  - ANHEDONIA [None]
  - RENAL IMPAIRMENT [None]
  - RENAL FAILURE [None]
  - RENAL INJURY [None]
  - MENTAL DISORDER [None]
  - EMOTIONAL DISTRESS [None]
  - ANXIETY [None]
  - MULTI-ORGAN FAILURE [None]
  - DEATH [None]
  - STRESS [None]
  - UNEVALUABLE EVENT [None]
